FAERS Safety Report 5931738-2 (Version None)
Quarter: 2008Q4

REPORT INFORMATION
  Report Type: 
  Country: None (occurrence: None)
  Receive Date: 20081027
  Receipt Date: 20081015
  Transmission Date: 20090506
  Serious: Yes (Hospitalization)
  Sender: FDA-Public Use
  Company Number: FR-ROCHE-592229

PATIENT
  Age: 22 Year

DRUGS (5)
  1. MYCOPHENOLATE MOFETIL [Suspect]
     Dosage: INCREASED. MINIMUM TARGET OF 2G PER DAY
     Route: 065
  2. PREDNISOLONE [Suspect]
     Route: 048
  3. PREDNISOLONE [Suspect]
     Dosage: INCREASED
     Route: 048
  4. CYCLOSPORINE [Suspect]
     Route: 065
  5. TACROLIMUS [Suspect]
     Route: 065

REACTIONS (7)
  - ASTHENIA [None]
  - CARDIAC FAILURE [None]
  - DRUG INEFFECTIVE [None]
  - DYSPEPSIA [None]
  - EJECTION FRACTION DECREASED [None]
  - HEART TRANSPLANT REJECTION [None]
  - SHOCK [None]
